FAERS Safety Report 8819534 (Version 2)
Quarter: 2012Q4

REPORT INFORMATION
  Report Type: 
  Country: JP (occurrence: JP)
  Receive Date: 20120930
  Receipt Date: 20121116
  Transmission Date: 20130627
  Serious: Yes (Other)
  Sender: FDA-Public Use
  Company Number: JP-MERCK-1208JPN002579

PATIENT
  Age: 31 Year
  Sex: Female
  Weight: 45 kg

DRUGS (5)
  1. REFLEX [Suspect]
     Indication: DEPRESSION
     Dosage: 15 mg, hs
     Route: 048
     Dates: start: 20110228, end: 20110327
  2. REFLEX [Suspect]
     Dosage: 30 mg, hs
     Route: 048
     Dates: start: 20110328, end: 201108
  3. REFLEX [Suspect]
     Dosage: 15 mg, hs
     Route: 048
     Dates: start: 201108, end: 20110819
  4. BROTIZOLAM [Concomitant]
     Indication: INSOMNIA
     Dosage: 0.25 mg, hs
     Route: 048
     Dates: start: 20110228, end: 20110328
  5. BROTIZOLAM [Concomitant]
     Dosage: 0.25 mg, qd
     Dates: start: 201108

REACTIONS (4)
  - Hyperphagia [Recovered/Resolved]
  - Sleep-related eating disorder [Recovered/Resolved]
  - Compulsive shopping [Recovered/Resolved]
  - Weight increased [Recovered/Resolved]
